FAERS Safety Report 7010621-8 (Version None)
Quarter: 2010Q3

REPORT INFORMATION
  Report Type: 
  Country: None (occurrence: None)
  Receive Date: 20100923
  Receipt Date: 20100920
  Transmission Date: 20110219
  Serious: Yes (Hospitalization)
  Sender: FDA-Public Use
  Company Number: US-AMGEN-KDL439353

PATIENT
  Sex: Male

DRUGS (1)
  1. ENBREL [Suspect]
     Indication: PSORIATIC ARTHROPATHY
     Route: 058

REACTIONS (4)
  - BLOOD PRESSURE INCREASED [None]
  - COELIAC DISEASE [None]
  - DIARRHOEA [None]
  - VOMITING [None]
